FAERS Safety Report 4367859-8 (Version None)
Quarter: 2004Q2

REPORT INFORMATION
  Report Type: 
  Country: None (occurrence: None)
  Receive Date: 20040601
  Receipt Date: 20040601
  Transmission Date: 20050107
  Serious: Yes (Hospitalization)
  Sender: FDA-Public Use
  Company Number: None

PATIENT
  Age: 80 Year
  Sex: Male

DRUGS (9)
  1. TEQUIN [Suspect]
     Indication: PNEUMONIA
     Dosage: 200 MG ORAL
     Route: 048
     Dates: start: 20040507, end: 20040508
  2. FELODIPINE [Concomitant]
  3. TRAZODONE HCL [Concomitant]
  4. FOLIC ACID [Concomitant]
  5. GLIPIZIDE [Concomitant]
  6. LEVOTHYROXINE SODIUM [Concomitant]
  7. METOPROLOL TARTRATE [Concomitant]
  8. OXYBUTYNIN [Concomitant]
  9. SERTRALINE [Concomitant]

REACTIONS (1)
  - BLOOD GLUCOSE DECREASED [None]
